FAERS Safety Report 12416355 (Version 1)
Quarter: 2016Q2

REPORT INFORMATION
  Report Type: Spontaneous
  Country: US (occurrence: US)
  Receive Date: 20160530
  Receipt Date: 20160530
  Transmission Date: 20160815
  Serious: No
  Sender: FDA-Public Use
  Company Number: US-BIOGEN-2016BI00219909

PATIENT
  Sex: Male

DRUGS (2)
  1. TYSABRI [Suspect]
     Active Substance: NATALIZUMAB
     Indication: MULTIPLE SCLEROSIS
     Dosage: STARTING DOSE
     Route: 048
     Dates: start: 20131206, end: 20150313
  2. TYSABRI [Suspect]
     Active Substance: NATALIZUMAB
     Dosage: MAINTENANCE DOSE
     Route: 048

REACTIONS (2)
  - Fatigue [Unknown]
  - Dizziness [Unknown]
